FAERS Safety Report 6300707-5 (Version None)
Quarter: 2009Q3

REPORT INFORMATION
  Report Type: 
  Country: None (occurrence: None)
  Receive Date: 20090807
  Receipt Date: 20090724
  Transmission Date: 20100115
  Serious: Yes (Hospitalization)
  Sender: FDA-Public Use
  Company Number: ES-RANBAXY-2009RR-25926

PATIENT
  Age: 70 Year
  Sex: Male

DRUGS (2)
  1. ZOLPIDEM [Suspect]
     Indication: INSOMNIA
     Dosage: 10 MG, UNK
  2. ZOLPIDEM [Suspect]
     Dosage: 5 MG, UNK

REACTIONS (1)
  - DERMATITIS EXFOLIATIVE [None]
